FAERS Safety Report 6998920-7 (Version None)
Quarter: 2010Q3

REPORT INFORMATION
  Report Type: 
  Country: None (occurrence: None)
  Receive Date: 20100920
  Receipt Date: 20091020
  Transmission Date: 20110219
  Serious: No
  Sender: FDA-Public Use
  Company Number: US-ASTRAZENECA-2009UW09188

PATIENT
  Age: 51 Year
  Sex: Female

DRUGS (3)
  1. SEROQUEL [Suspect]
     Indication: BIPOLAR DISORDER
     Dosage: 100 MG TO 200 MG
     Route: 048
     Dates: start: 20040101
  2. RISPERDAL [Concomitant]
     Dates: start: 20020101, end: 20030101
  3. ZYPREXA [Concomitant]
     Dates: start: 20020101, end: 20030101

REACTIONS (1)
  - DIABETES MELLITUS [None]
